FAERS Safety Report 5929454-6 (Version None)
Quarter: 2008Q4

REPORT INFORMATION
  Report Type: 
  Country: None (occurrence: None)
  Receive Date: 20081024
  Receipt Date: 20081020
  Transmission Date: 20090506
  Serious: Yes (Hospitalization, Other)
  Sender: FDA-Public Use
  Company Number: US-ELI_LILLY_AND_COMPANY-US200810004931

PATIENT
  Age: 63 Year
  Sex: Female

DRUGS (1)
  1. HUMALOG [Suspect]

REACTIONS (3)
  - HOSPITALISATION [None]
  - SCAB [None]
  - TOE AMPUTATION [None]
